FAERS Safety Report 8249923 (Version 2)
Quarter: 2012Q4

REPORT INFORMATION
  Report Type: 
  Country: US (occurrence: US)
  Receive Date: 20111117
  Receipt Date: 20121023
  Transmission Date: 20130627
  Serious: Yes (Other)
  Sender: FDA-Public Use
  Company Number: US-AMGEN-USASP2011003083

PATIENT
  Age: 42 Year
  Sex: Female
  Weight: 57.14 kg

DRUGS (3)
  1. ENBREL [Suspect]
     Indication: ANKYLOSING SPONDYLITIS
     Dosage: 50 mg, qwk
     Dates: start: 20110112
  2. ENBREL [Suspect]
     Dosage: UNK
  3. METHOTREXATE [Concomitant]
     Dosage: 2.5 mg, qwk
     Dates: start: 200912

REACTIONS (9)
  - Staphylococcal bacteraemia [Recovering/Resolving]
  - Haematuria [Not Recovered/Not Resolved]
  - Abdominal pain upper [Not Recovered/Not Resolved]
  - Breast tenderness [Recovered/Resolved]
  - Nausea [Not Recovered/Not Resolved]
  - Injection site mass [Recovered/Resolved]
  - Injection site reaction [Recovered/Resolved]
  - Injection site pain [Recovered/Resolved]
  - Bacterial disease carrier [Unknown]
